FAERS Safety Report 25748807 (Version 2)
Quarter: 2025Q4

REPORT INFORMATION
  Report Type: Report from Study
  Country: US (occurrence: US)
  Receive Date: 20250902
  Receipt Date: 20251117
  Transmission Date: 20260118
  Serious: Yes (Other)
  Sender: ABBVIE
  Company Number: US-ABBVIE-6438779

PATIENT
  Age: 63 Year
  Sex: Female

DRUGS (1)
  1. RINVOQ [Suspect]
     Active Substance: UPADACITINIB
     Indication: Rheumatoid arthritis
     Route: 048
     Dates: start: 20220108

REACTIONS (6)
  - Hip arthroplasty [Unknown]
  - Swelling [Unknown]
  - Pain in extremity [Unknown]
  - Pain in extremity [Recovered/Resolved]
  - Discomfort [Unknown]
  - Hip arthroplasty [Recovered/Resolved]

NARRATIVE: CASE EVENT DATE: 20250813
